FAERS Safety Report 20565984 (Version 1)
Quarter: 2022Q1

REPORT INFORMATION
  Report Type: Spontaneous
  Country: CA (occurrence: CA)
  Receive Date: 20220308
  Receipt Date: 20220308
  Transmission Date: 20220424
  Serious: Yes (Life-Threatening, Hospitalization)
  Sender: FDA-Public Use
  Company Number: CA-TEVA-2022-CA-2013494

PATIENT
  Age: 24 Year
  Sex: Female

DRUGS (4)
  1. ABILIFY MAINTENA [Suspect]
     Active Substance: ARIPIPRAZOLE
     Indication: Product used for unknown indication
     Route: 048
  2. ONDANSETRON [Suspect]
     Active Substance: ONDANSETRON
     Indication: Product used for unknown indication
     Route: 065
  3. DICLOFENAC POTASSIUM\METAXALONE [Suspect]
     Active Substance: DICLOFENAC POTASSIUM\METAXALONE
     Indication: Product used for unknown indication
     Route: 065
  4. LEVOMEPROMAZINE [Suspect]
     Active Substance: LEVOMEPROMAZINE
     Indication: Product used for unknown indication
     Route: 042

REACTIONS (6)
  - Cardiac arrest [Unknown]
  - Torsade de pointes [Unknown]
  - Blood calcium decreased [Unknown]
  - Blood creatinine decreased [Unknown]
  - Calcium ionised decreased [Unknown]
  - Haemoglobin decreased [Unknown]
